FAERS Safety Report 7489911-0 (Version None)
Quarter: 2011Q2

REPORT INFORMATION
  Report Type: 
  Country: None (occurrence: None)
  Receive Date: 20110512
  Receipt Date: 20110504
  Transmission Date: 20111010
  Serious: Yes (Other)
  Sender: FDA-Public Use
  Company Number: 2011CP000081

PATIENT
  Age: 75 Year
  Sex: Male

DRUGS (5)
  1. RAMIPRIL [Concomitant]
  2. ALCOHOL (ETHANOL) [Suspect]
  3. ACETAMINOPHEN [Suspect]
     Indication: FALL
     Dosage: 4 GM; 24 HOUR; IV
     Route: 042
  4. ACETAMINOPHEN [Suspect]
     Dosage: 4 GM; 1 DAY;
  5. HYDROCHLOROTHIAZIDE [Concomitant]

REACTIONS (7)
  - AGITATION [None]
  - HEPATOTOXICITY [None]
  - COAGULOPATHY [None]
  - ACUTE HEPATIC FAILURE [None]
  - COAGULATION FACTOR V LEVEL DECREASED [None]
  - INTERNATIONAL NORMALISED RATIO INCREASED [None]
  - BLOOD LACTIC ACID INCREASED [None]
